FAERS Safety Report 5867070-5 (Version None)
Quarter: 2008Q3

REPORT INFORMATION
  Report Type: 
  Country: None (occurrence: None)
  Receive Date: 20080902
  Receipt Date: 20080826
  Transmission Date: 20090109
  Serious: Yes (Hospitalization)
  Sender: FDA-Public Use
  Company Number: B0534412A

PATIENT
  Age: 51 Year
  Sex: Female

DRUGS (2)
  1. ZOPHREN [Suspect]
     Indication: DRUG USE FOR UNKNOWN INDICATION
     Dosage: 18MG PER DAY
     Route: 048
     Dates: start: 20080707
  2. ALKERAN [Concomitant]
     Indication: DRUG USE FOR UNKNOWN INDICATION

REACTIONS (2)
  - CLONUS [None]
  - DYSKINESIA [None]
